FAERS Safety Report 9624574 (Version 14)
Quarter: 2019Q4

REPORT INFORMATION
  Report Type: Report from Study
  Country: RU (occurrence: RU)
  Receive Date: 20131015
  Receipt Date: 20191224
  Transmission Date: 20200122
  Serious: Yes (Hospitalization)
  Sender: FDA-Public Use
  Company Number: RU-ROCHE-1285183

PATIENT
  Age: 73 Year
  Sex: Female
  Weight: 85 kg

DRUGS (13)
  1. FOSINOPRIL [Concomitant]
     Active Substance: FOSINOPRIL
     Route: 065
     Dates: start: 2009
  2. TRASTUZUMAB. [Suspect]
     Active Substance: TRASTUZUMAB
     Dosage: DATE OF LAST DOSE PRIOR TO EVENT: 22/JAN/2013
     Route: 058
     Dates: start: 20121019
  3. NADROPARIN CALCIUM [Concomitant]
     Active Substance: NADROPARIN CALCIUM
     Route: 065
     Dates: start: 20130524, end: 20130730
  4. TRIMETAZIDINE [Concomitant]
     Active Substance: TRIMETAZIDINE
     Route: 065
     Dates: start: 20121001
  5. TRASTUZUMAB. [Suspect]
     Active Substance: TRASTUZUMAB
     Dosage: DATE OF LAST DOSE PRIOR TO EVENT: 05/MAR/2013
     Route: 058
     Dates: start: 20130212
  6. LOSARTAN. [Concomitant]
     Active Substance: LOSARTAN
     Route: 065
     Dates: start: 2009
  7. RABEPRAZOLE [Concomitant]
     Active Substance: RABEPRAZOLE
     Route: 065
     Dates: start: 201207
  8. LEVOTHYROXINE SODIUM. [Concomitant]
     Active Substance: LEVOTHYROXINE SODIUM
     Route: 065
     Dates: start: 1971
  9. NADROPARIN CALCIUM [Concomitant]
     Active Substance: NADROPARIN CALCIUM
     Route: 065
     Dates: start: 20130731
  10. NADROPARINUM CALCICUM [Concomitant]
     Route: 065
     Dates: start: 20130524, end: 20130730
  11. ASPIRIN [ACETYLSALICYLIC ACID] [Concomitant]
     Active Substance: ASPIRIN
     Route: 065
     Dates: start: 2004
  12. TRASTUZUMAB. [Suspect]
     Active Substance: TRASTUZUMAB
     Indication: HER-2 POSITIVE BREAST CANCER
     Dosage: DATE OF LAST DOSE PRIOR TO EVENT: 11/SEP/2013
     Route: 058
     Dates: start: 20130710, end: 20131015
  13. NADROPARIN CALCIUM [Concomitant]
     Active Substance: NADROPARIN CALCIUM
     Route: 065
     Dates: start: 20120907

REACTIONS (1)
  - Coronary artery disease [Recovered/Resolved]

NARRATIVE: CASE EVENT DATE: 20130917
